FAERS Safety Report 8339243-3 (Version None)
Quarter: 2012Q2

REPORT INFORMATION
  Report Type: 
  Country: None (occurrence: None)
  Receive Date: 20120502
  Receipt Date: 20120425
  Transmission Date: 20120825
  Serious: Yes (Death, Life-Threatening, Hospitalization)
  Sender: FDA-Public Use
  Company Number: 2012AL000016

PATIENT
  Age: 65 Year
  Sex: Male

DRUGS (6)
  1. VENLAFAXINE [Concomitant]
  2. ACYCLOVIR [Concomitant]
  3. RABEPRAZOLE SODIUM [Concomitant]
  4. FOLOTYN [Suspect]
     Indication: PERIPHERAL T-CELL LYMPHOMA UNSPECIFIED
     Dosage: 56 MG;QW;IV
     Route: 042
     Dates: start: 20120109, end: 20120206
  5. KEFLEX [Concomitant]
  6. LEVOTHYROXINE SODIUM [Concomitant]

REACTIONS (10)
  - MUCOSAL INFLAMMATION [None]
  - DISEASE PROGRESSION [None]
  - CULTURE POSITIVE [None]
  - ACUTE RESPIRATORY DISTRESS SYNDROME [None]
  - LUNG CONSOLIDATION [None]
  - INFLUENZA [None]
  - INFLUENZA B VIRUS TEST POSITIVE [None]
  - LYMPHOMA [None]
  - CORONAVIRUS TEST POSITIVE [None]
  - FEBRILE NEUTROPENIA [None]
